FAERS Safety Report 7672293-9 (Version None)
Quarter: 2011Q3

REPORT INFORMATION
  Report Type: 
  Country: None (occurrence: None)
  Receive Date: 20110809
  Receipt Date: 20110803
  Transmission Date: 20111222
  Serious: Yes (Other)
  Sender: FDA-Public Use
  Company Number: PHHO2011US04221

PATIENT
  Sex: Female
  Weight: 61.9 kg

DRUGS (2)
  1. GILENYA [Suspect]
     Dosage: 0.5 MG, QD
     Route: 048
     Dates: end: 20110302
  2. GILENYA [Suspect]
     Indication: MULTIPLE SCLEROSIS
     Dosage: DOSE BLINDED
     Route: 048
     Dates: start: 20100304

REACTIONS (3)
  - SKIN LESION [None]
  - INFLAMMATION [None]
  - DYSPLASTIC NAEVUS [None]
